FAERS Safety Report 20111806 (Version 1)
Quarter: 2021Q4

REPORT INFORMATION
  Report Type: Spontaneous
  Country: AU (occurrence: AU)
  Receive Date: 20211125
  Receipt Date: 20211125
  Transmission Date: 20220303
  Serious: Yes (Hospitalization)
  Sender: FDA-Public Use
  Company Number: AU-CHIESI-2015AP014552

PATIENT
  Age: 70 Year
  Sex: Male
  Weight: 74 kg

DRUGS (15)
  1. FERRIPROX [Suspect]
     Active Substance: DEFERIPRONE
     Indication: Parkinson^s disease
     Dosage: 2000 MG, QD
     Route: 048
     Dates: start: 201511, end: 20160702
  2. FERRIPROX [Suspect]
     Active Substance: DEFERIPRONE
     Dosage: 1500 MG, QD
     Route: 048
     Dates: start: 20141021, end: 201511
  3. FERRIPROX [Suspect]
     Active Substance: DEFERIPRONE
     Dosage: 2000 MG, OTHER
     Route: 048
     Dates: start: 20170927
  4. FERRIPROX [Suspect]
     Active Substance: DEFERIPRONE
     Dosage: 1500 MG, OTHER
     Route: 048
     Dates: start: 20170927
  5. FERRIPROX [Suspect]
     Active Substance: DEFERIPRONE
     Dosage: 1000 MG, QD
     Route: 048
     Dates: start: 20180912, end: 20180914
  6. FERRIPROX [Suspect]
     Active Substance: DEFERIPRONE
     Dosage: 1500 MG/KG, QD
     Route: 048
     Dates: start: 20180914
  7. FERRIPROX [Suspect]
     Active Substance: DEFERIPRONE
     Dosage: UNK
  8. AZILECT [Concomitant]
     Active Substance: RASAGILINE MESYLATE
     Indication: Parkinson^s disease
     Dosage: 1 MG, QD
     Route: 065
     Dates: start: 20160702
  9. AZILECT [Concomitant]
     Active Substance: RASAGILINE MESYLATE
     Dosage: 2 MG, QD
     Route: 065
     Dates: start: 201302, end: 20160702
  10. AZILECT [Concomitant]
     Active Substance: RASAGILINE MESYLATE
     Dosage: 1 MG, QD
     Route: 048
     Dates: start: 20170927
  11. AZILECT [Concomitant]
     Active Substance: RASAGILINE MESYLATE
     Dosage: 1 MG, QD
     Route: 048
     Dates: start: 20180914
  12. SINEMET [Concomitant]
     Active Substance: CARBIDOPA\LEVODOPA
     Indication: Parkinson^s disease
     Dosage: 1 DF, TID
     Route: 048
     Dates: start: 20180914
  13. DOXYCYCLINE [Concomitant]
     Active Substance: DOXYCYCLINE
     Indication: Parkinson^s disease
     Dosage: 25 MG, OTHER
     Route: 048
     Dates: start: 20170927
  14. DOXYCYCLINE [Concomitant]
     Active Substance: DOXYCYCLINE
     Dosage: 50 MG, OTHER
     Route: 048
     Dates: start: 20170927
  15. ZINC [Concomitant]
     Active Substance: ZINC
     Indication: Parkinson^s disease
     Dosage: 25 MG, QD
     Route: 048
     Dates: start: 20170927

REACTIONS (3)
  - Off label use [Recovered/Resolved]
  - No adverse event [Recovered/Resolved]
  - Lower limb fracture [Unknown]

NARRATIVE: CASE EVENT DATE: 20141021
